FAERS Safety Report 5696255-6 (Version None)
Quarter: 2008Q2

REPORT INFORMATION
  Report Type: 
  Country: None (occurrence: None)
  Receive Date: 20080407
  Receipt Date: 20080326
  Transmission Date: 20081010
  Serious: Yes (Hospitalization)
  Sender: FDA-Public Use
  Company Number: US-AMGEN-US271551

PATIENT
  Sex: Female
  Weight: 80.8 kg

DRUGS (9)
  1. PROCRIT [Suspect]
     Indication: RENAL FAILURE CHRONIC
     Route: 058
     Dates: start: 20071101
  2. ZETIA [Concomitant]
     Route: 065
  3. HECTORAL [Concomitant]
     Route: 065
     Dates: start: 20080201
  4. ZEMPLAR [Concomitant]
     Route: 065
  5. FOSAMAX [Concomitant]
     Route: 065
  6. NOVALOG INSULIN [Concomitant]
     Route: 065
  7. IMDUR [Concomitant]
     Route: 065
  8. AGGRENOX [Concomitant]
     Route: 065
  9. NOVOLIN R [Concomitant]
     Route: 065

REACTIONS (4)
  - BLOOD CREATININE INCREASED [None]
  - DEHYDRATION [None]
  - DIARRHOEA [None]
  - OEDEMA PERIPHERAL [None]
